FAERS Safety Report 17073783 (Version 2)
Quarter: 2020Q1

REPORT INFORMATION
  Report Type: Spontaneous
  Country: US (occurrence: US)
  Receive Date: 20191126
  Receipt Date: 20200122
  Transmission Date: 20200409
  Serious: No
  Sender: FDA-Public Use
  Company Number: US-009507513-1911USA010651

PATIENT
  Age: 37 Year
  Sex: Female
  Weight: 132.43 kg

DRUGS (2)
  1. NEXPLANON [Suspect]
     Active Substance: ETONOGESTREL
     Dosage: 1 ROD, UNK, INTO LEFT ARM
     Route: 059
     Dates: end: 20191118
  2. NEXPLANON [Suspect]
     Active Substance: ETONOGESTREL
     Dosage: 1 ROD
     Route: 059
     Dates: start: 20191118

REACTIONS (3)
  - Complication of device insertion [Unknown]
  - Device difficult to use [Unknown]
  - Product quality issue [Unknown]

NARRATIVE: CASE EVENT DATE: 20191118
